FAERS Safety Report 9016452 (Version 1)
Quarter: 2013Q1

REPORT INFORMATION
  Report Type: Spontaneous
  Country: JM (occurrence: JM)
  Receive Date: 20130116
  Receipt Date: 20130116
  Transmission Date: 20140127
  Serious: Yes (Death)
  Sender: FDA-Public Use
  Company Number: JM-B.I. PHARMACEUTICALS,INC./RIDGEFIELD-2013-CN-00043CN

PATIENT
  Age: 94 Year
  Sex: Female

DRUGS (9)
  1. PRADAX [Suspect]
  2. LANTUS INSULIN [Concomitant]
  3. CAVINTON FORTE [Concomitant]
  4. DIGOXIN [Concomitant]
  5. VASTAREL [Concomitant]
  6. METFORMIN [Concomitant]
  7. NITROMINT RETARD [Concomitant]
  8. LASIX [Concomitant]
  9. ALDACTONE [Concomitant]

REACTIONS (1)
  - Death [Fatal]
